FAERS Safety Report 11319748 (Version 1)
Quarter: 2015Q3

REPORT INFORMATION
  Report Type: Spontaneous
  Country: US (occurrence: US)
  Receive Date: 20150729
  Receipt Date: 20150729
  Transmission Date: 20151125
  Serious: Yes (Other)
  Sender: FDA-Public Use
  Company Number: US-ROCHE-1614086

PATIENT
  Age: 75 Year
  Sex: Female

DRUGS (5)
  1. COD LIVER OIL [Concomitant]
     Active Substance: COD LIVER OIL
     Route: 065
     Dates: start: 1982
  2. TUMS [Concomitant]
     Active Substance: CALCIUM CARBONATE
     Route: 065
     Dates: start: 1988
  3. FOSAMAX [Suspect]
     Active Substance: ALENDRONATE SODIUM
     Indication: OSTEOPOROSIS
     Route: 048
     Dates: start: 20000410, end: 201203
  4. BONIVA [Suspect]
     Active Substance: IBANDRONATE SODIUM
     Indication: OSTEOPOROSIS
     Route: 065
  5. MAGNESIUM CHLORIDE. [Concomitant]
     Active Substance: MAGNESIUM CHLORIDE
     Route: 065
     Dates: start: 2002

REACTIONS (6)
  - Insomnia [Unknown]
  - Low turnover osteopathy [Unknown]
  - Emotional distress [Unknown]
  - Femur fracture [Unknown]
  - Depression [Unknown]
  - Anxiety [Unknown]

NARRATIVE: CASE EVENT DATE: 20090511
